FAERS Safety Report 17854091 (Version 1)
Quarter: 2020Q2

REPORT INFORMATION
  Report Type: Spontaneous
  Country: US (occurrence: US)
  Receive Date: 20200603
  Receipt Date: 20200603
  Transmission Date: 20200714
  Serious: No
  Sender: FDA-Public Use
  Company Number: US-GUERBET-US-20190056

PATIENT
  Age: 86 Year
  Sex: Female

DRUGS (1)
  1. DOTAREM [Suspect]
     Active Substance: GADOTERATE MEGLUMINE
     Indication: MAGNETIC RESONANCE IMAGING BRAIN
     Route: 065
     Dates: start: 20181213, end: 20181213

REACTIONS (4)
  - Pruritus [Recovered/Resolved]
  - Injection site extravasation [Recovered/Resolved]
  - Skin ulcer [Recovered/Resolved]
  - Accidental underdose [Recovered/Resolved]

NARRATIVE: CASE EVENT DATE: 20181220
